FAERS Safety Report 13277322 (Version 2)
Quarter: 2019Q1

REPORT INFORMATION
  Report Type: Spontaneous
  Country: US (occurrence: US)
  Receive Date: 20170228
  Receipt Date: 20190204
  Transmission Date: 20190417
  Serious: Yes (Other)
  Sender: FDA-Public Use
  Company Number: US-PFIZER INC-2017077539

PATIENT
  Age: 11 Year
  Sex: Male
  Weight: 26 kg

DRUGS (3)
  1. GENOTROPIN [Suspect]
     Active Substance: SOMATROPIN
     Indication: STEVENS-JOHNSON SYNDROME
     Dosage: 2.4 MG, DAILY
     Dates: start: 201604
  2. GENOTROPIN [Suspect]
     Active Substance: SOMATROPIN
     Indication: FALLOT^S TETRALOGY
  3. GENOTROPIN [Suspect]
     Active Substance: SOMATROPIN
     Indication: HYPOPITUITARISM
     Dosage: INJECTED AT 1.4 UNDER THE SKIN NIGHTLY
     Route: 058
     Dates: start: 20160415

REACTIONS (4)
  - Intentional dose omission [Unknown]
  - Gastroenteritis viral [Recovered/Resolved]
  - Growth failure [Unknown]
  - Headache [Recovered/Resolved]

NARRATIVE: CASE EVENT DATE: 20170118
